FAERS Safety Report 25564039 (Version 2)
Quarter: 2025Q3

REPORT INFORMATION
  Report Type: Spontaneous
  Country: EU (occurrence: EU)
  Receive Date: 20250716
  Receipt Date: 20250725
  Transmission Date: 20251020
  Serious: Yes (Life-Threatening, Hospitalization, Other)
  Sender: ALKEM
  Company Number: None

PATIENT
  Age: 54 Year
  Sex: Female

DRUGS (6)
  1. IBUPROFEN [Suspect]
     Active Substance: IBUPROFEN
     Indication: Analgesic therapy
     Route: 065
  2. AMPICILLIN [Suspect]
     Active Substance: AMPICILLIN
     Indication: Respiratory tract infection
     Route: 065
  3. ABACAVIR [Concomitant]
     Active Substance: ABACAVIR
     Indication: Acute HIV infection
     Route: 065
  4. CEFTRIAXONE [Concomitant]
     Active Substance: CEFTRIAXONE
     Indication: Urinary tract infection
     Route: 065
  5. DARUNAVIR [Concomitant]
     Active Substance: DARUNAVIR
     Indication: Acute HIV infection
     Route: 065
  6. LAMIVUDINE [Concomitant]
     Active Substance: LAMIVUDINE
     Indication: Acute HIV infection
     Route: 065

REACTIONS (4)
  - Glomerulonephritis minimal lesion [Recovered/Resolved]
  - Rhabdomyolysis [Unknown]
  - Multiple organ dysfunction syndrome [Recovered/Resolved]
  - Acute kidney injury [Recovered/Resolved]
